FAERS Safety Report 18679235 (Version 1)
Quarter: 2020Q4

REPORT INFORMATION
  Report Type: Spontaneous
  Country: US (occurrence: US)
  Receive Date: 20201230
  Receipt Date: 20201230
  Transmission Date: 20210114
  Serious: No
  Sender: FDA-Public Use
  Company Number: US-BAUSCH-BL-2020-038771

PATIENT
  Age: 56 Year
  Sex: Female
  Weight: 68.1 kg

DRUGS (1)
  1. PIMECROLIMUS CREAM 1% [Suspect]
     Active Substance: PIMECROLIMUS
     Indication: BLEPHARITIS
     Dosage: DISCONTINUED THE PRODUCT AFTER THE FIRST USE
     Route: 061
     Dates: start: 20201221, end: 20201221

REACTIONS (4)
  - Application site rash [Not Recovered/Not Resolved]
  - Application site erythema [Not Recovered/Not Resolved]
  - Eyelid irritation [Recovered/Resolved]
  - Eyelids pruritus [Recovered/Resolved]

NARRATIVE: CASE EVENT DATE: 20201221
